FAERS Safety Report 17772369 (Version 10)
Quarter: 2020Q4

REPORT INFORMATION
  Report Type: Report from Study
  Country: CA (occurrence: CA)
  Receive Date: 20200512
  Receipt Date: 20201225
  Transmission Date: 20210113
  Serious: Yes (Other)
  Sender: FDA-Public Use
  Company Number: PHHY2018CA119921

PATIENT
  Age: 73 Year
  Sex: Female

DRUGS (7)
  1. SANDOSTATIN LAR DEPOT [Suspect]
     Active Substance: OCTREOTIDE ACETATE
     Indication: CARCINOID SYNDROME
     Dosage: 30 MG, QMO (EVERY 4 WEEKS)
     Route: 030
     Dates: start: 20170808
  2. SANDOSTATIN LAR DEPOT [Suspect]
     Active Substance: OCTREOTIDE ACETATE
     Dosage: 40 MG, QMO (EVERY 4 WEEKS)
     Route: 030
     Dates: start: 20190622
  3. SANDOSTATIN LAR DEPOT [Suspect]
     Active Substance: OCTREOTIDE ACETATE
     Dosage: 20 MG, Q2W (EVERY 2 WEEKS)
     Route: 030
  4. SANDOSTATIN LAR DEPOT [Suspect]
     Active Substance: OCTREOTIDE ACETATE
     Indication: DIARRHOEA
     Dosage: 20 MG, QMO (EVERY 4 WEEKS)
     Route: 030
     Dates: start: 20181231
  5. SANDOSTATIN LAR DEPOT [Suspect]
     Active Substance: OCTREOTIDE ACETATE
     Dosage: 20 MG, Q2W
     Route: 030
     Dates: start: 20200813
  6. SANDOSTATIN LAR DEPOT [Suspect]
     Active Substance: OCTREOTIDE ACETATE
     Dosage: 20 MG, QMO (EVERY 4 WEEKS)
     Route: 030
     Dates: start: 20190301
  7. SANDOSTATIN LAR DEPOT [Suspect]
     Active Substance: OCTREOTIDE ACETATE
     Dosage: 30 MG, QMO (EVERY 4 WEEKS)
     Route: 030

REACTIONS (23)
  - Fatigue [Unknown]
  - Pain [Unknown]
  - Urinary tract infection [Unknown]
  - Haemorrhoids [Unknown]
  - Cataract [Unknown]
  - Blood pressure fluctuation [Unknown]
  - Arthralgia [Unknown]
  - Pallor [Unknown]
  - Inappropriate schedule of product administration [Unknown]
  - Anxiety [Unknown]
  - Blood pressure systolic increased [Unknown]
  - Cyst [Unknown]
  - Diarrhoea [Unknown]
  - Drug ineffective [Unknown]
  - Myelosuppression [Unknown]
  - Hypertension [Unknown]
  - Groin pain [Unknown]
  - Cystitis [Unknown]
  - Renal neoplasm [Unknown]
  - Renal impairment [Unknown]
  - Gait disturbance [Unknown]
  - Proctalgia [Unknown]
  - Blood pressure diastolic decreased [Unknown]

NARRATIVE: CASE EVENT DATE: 20181002
